FAERS Safety Report 26109561 (Version 1)
Quarter: 2025Q4

REPORT INFORMATION
  Report Type: Spontaneous
  Country: US (occurrence: US)
  Receive Date: 20251201
  Receipt Date: 20251201
  Transmission Date: 20260117
  Serious: Yes (Other)
  Sender: BRISTOL-MYERS SQUIBB COMPANY
  Company Number: US-BRISTOL-MYERS SQUIBB COMPANY-2025-161647

PATIENT
  Age: 74 Year
  Sex: Male
  Weight: 63.5 kg

DRUGS (1)
  1. POMALYST [Suspect]
     Active Substance: POMALIDOMIDE
     Indication: Non-Hodgkin^s lymphoma
     Dosage: TAKE 5 - 1MG CAPSULES ONCE DAILY FOR 21 DAYS, THEN 7 DAYS OFF, EVERY 28-DAY CYCLE
     Route: 048

REACTIONS (2)
  - Heart rate increased [Recovering/Resolving]
  - Respiratory distress [Recovering/Resolving]
